FAERS Safety Report 19270461 (Version 1)
Quarter: 2021Q2

REPORT INFORMATION
  Report Type: Spontaneous
  Country: CN (occurrence: CN)
  Receive Date: 20210518
  Receipt Date: 20210518
  Transmission Date: 20210717
  Serious: Yes (Hospitalization)
  Sender: FDA-Public Use
  Company Number: CN-GLAXOSMITHKLINE-CN2021APC100703

PATIENT
  Age: 17 Year
  Sex: Male
  Weight: 58.5 kg

DRUGS (5)
  1. VALPROMIDE [Suspect]
     Active Substance: VALPROMIDE
     Indication: EPILEPSY
     Dosage: 2 DF, BID
     Route: 048
     Dates: start: 202102
  2. LAMICTAL [Suspect]
     Active Substance: LAMOTRIGINE
     Dosage: 1 DF, QD
     Route: 048
     Dates: start: 20210507
  3. LAMICTAL [Suspect]
     Active Substance: LAMOTRIGINE
     Indication: EPILEPSY
     Dosage: UNK UNK, QD,? TABLETS
     Route: 048
     Dates: start: 202104
  4. PHENYTOIN SODIUM. [Suspect]
     Active Substance: PHENYTOIN SODIUM
     Indication: EPILEPSY
     Dosage: 2 DF, BID
     Route: 048
     Dates: start: 202102
  5. COMPOUND PHENOBARBITAL NITRAZEPAM AND CHLORPHENAMINE MALEATE TABLETS (CHLORPHENIRAMINE MALEATE\NITRAZEPAM\PHENOBARBITAL\PYRIDOXINE HYDROCHLORIDE) [Suspect]
     Active Substance: CHLORPHENIRAMINE MALEATE\NITRAZEPAM\PHENOBARBITAL\PYRIDOXINE HYDROCHLORIDE
     Indication: EPILEPSY
     Dosage: 1 DF, BID
     Route: 048
     Dates: start: 202102

REACTIONS (3)
  - Wrong technique in product usage process [Unknown]
  - Vomiting [Not Recovered/Not Resolved]
  - Flatulence [Unknown]
